FAERS Safety Report 5444984-1 (Version None)
Quarter: 2007Q3

REPORT INFORMATION
  Report Type: 
  Country: None (occurrence: None)
  Receive Date: 20070904
  Receipt Date: 20070904
  Transmission Date: 20080115
  Serious: Yes (Other)
  Sender: FDA-Public Use
  Company Number: None

PATIENT
  Sex: Female
  Weight: 79.3795 kg

DRUGS (4)
  1. LIPITOR [Suspect]
     Indication: BLOOD CHOLESTEROL INCREASED
     Dosage: 10 MG ONCE DAILY PO
     Route: 048
     Dates: start: 20040801, end: 20070601
  2. SINGULARE [Concomitant]
  3. SYNTHROID [Concomitant]
  4. ESTRACE [Concomitant]

REACTIONS (5)
  - ARTHRALGIA [None]
  - BACK PAIN [None]
  - HYPOAESTHESIA [None]
  - MUSCULAR WEAKNESS [None]
  - SENSATION OF HEAVINESS [None]
